FAERS Safety Report 5360787-0 (Version None)
Quarter: 2007Q2

REPORT INFORMATION
  Report Type: 
  Country: None (occurrence: None)
  Receive Date: 20070618
  Receipt Date: 20070607
  Transmission Date: 20071010
  Serious: Yes (Hospitalization)
  Sender: FDA-Public Use
  Company Number: FR-SANOFI-SYNTHELABO-A01200703175

PATIENT
  Sex: Female
  Weight: 62 kg

DRUGS (6)
  1. ZOLOFT [Suspect]
     Indication: DEPRESSION
     Route: 048
     Dates: start: 20040101
  2. VASTEN [Concomitant]
     Indication: HYPERCHOLESTEROLAEMIA
     Route: 065
  3. DETENSIEL [Concomitant]
     Indication: HYPERTENSION
     Route: 065
  4. LERCAN [Concomitant]
     Indication: HYPERTENSION
     Route: 065
  5. PERINDOPRIL ERBUMINE [Concomitant]
     Indication: HYPERTENSION
     Route: 065
  6. PLAVIX [Suspect]
     Indication: ISCHAEMIC STROKE
     Route: 048
     Dates: start: 20021001

REACTIONS (1)
  - PEMPHIGOID [None]
